FAERS Safety Report 15473173 (Version 1)
Quarter: 2018Q4

REPORT INFORMATION
  Report Type: Spontaneous
  Country: US (occurrence: US)
  Receive Date: 20181008
  Receipt Date: 20181008
  Transmission Date: 20190205
  Serious: No
  Sender: FDA-Public Use
  Company Number: US-JNJFOC-20180931892

PATIENT

DRUGS (1)
  1. LEVAQUIN [Suspect]
     Active Substance: LEVOFLOXACIN
     Indication: RHINITIS
     Route: 065

REACTIONS (3)
  - Ligament rupture [Unknown]
  - Hypoaesthesia [Unknown]
  - Tremor [Unknown]
